FAERS Safety Report 10768871 (Version 2)
Quarter: 2015Q1

REPORT INFORMATION
  Report Type: Spontaneous
  Country: US (occurrence: None)
  Receive Date: 20150204
  Receipt Date: 20150220
  Transmission Date: 20150721
  Serious: Yes (Death)
  Sender: FDA-Public Use
  Company Number: US-000024

PATIENT
  Age: 24 Month
  Sex: Male

DRUGS (1)
  1. MERCAPTOPURINE. [Suspect]
     Active Substance: MERCAPTOPURINE
     Indication: ACUTE LYMPHOCYTIC LEUKAEMIA
     Dosage: 2.4 ML, ONCE PER DAY
     Dates: start: 20140821, end: 20150102

REACTIONS (1)
  - Disease complication [None]

NARRATIVE: CASE EVENT DATE: 20150102
